FAERS Safety Report 23807297 (Version 2)
Quarter: 2024Q2

REPORT INFORMATION
  Report Type: Report from Study
  Country: US (occurrence: US)
  Receive Date: 20240502
  Receipt Date: 20240610
  Transmission Date: 20240716
  Serious: Yes (Hospitalization, Other)
  Sender: FDA-Public Use
  Company Number: US-AMNEAL PHARMACEUTICALS-2024-AMRX-01492

PATIENT
  Sex: Female

DRUGS (2)
  1. CARBIDOPA\LEVODOPA [Suspect]
     Active Substance: CARBIDOPA\LEVODOPA
     Indication: Parkinson^s disease
     Dosage: 245MG, 145MG, 195MG, 3X/DAY
     Route: 048
     Dates: start: 20240307, end: 20240425
  2. CARBIDOPA\LEVODOPA [Suspect]
     Active Substance: CARBIDOPA\LEVODOPA
     Dosage: 145MG, 2 CAPSULES, EVERY DAY, 195MG, 5 TIMES A DAY AND 245MG, 1 CAPSULE, 3 TIMES A DAY
     Route: 048

REACTIONS (5)
  - Seizure [Unknown]
  - Adverse drug reaction [Unknown]
  - Vision blurred [Unknown]
  - Dysarthria [Unknown]
  - Gait inability [Unknown]
